FAERS Safety Report 4591368-4 (Version None)
Quarter: 2005Q1

REPORT INFORMATION
  Report Type: 
  Country: None (occurrence: None)
  Receive Date: 20050222
  Receipt Date: 20050207
  Transmission Date: 20050727
  Serious: Yes (Death)
  Sender: FDA-Public Use
  Company Number: 2005UW02051

PATIENT
  Age: 42 Year
  Sex: Male

DRUGS (3)
  1. AMITRIPTYLINE HCL [Suspect]
  2. CLOZAPINE [Suspect]
     Indication: SCHIZOPHRENIA
     Dosage: 400 MG QD PO
     Route: 048
     Dates: start: 20010201, end: 20041101
  3. IMIPRAMINE [Suspect]

REACTIONS (1)
  - DRUG TOXICITY [None]
